FAERS Safety Report 10479706 (Version 1)
Quarter: 2014Q3

REPORT INFORMATION
  Report Type: Spontaneous
  Country: US (occurrence: None)
  Receive Date: 20140926
  Receipt Date: 20140926
  Transmission Date: 20150326
  Serious: Yes (Other)
  Sender: FDA-Public Use
  Company Number: None

PATIENT
  Sex: Female

DRUGS (1)
  1. DIOVAN [Suspect]
     Active Substance: VALSARTAN
     Indication: HYPERTENSION
     Dosage: 80 MG / 1 TABLET ONCE DAILY TAKEN BY MOUTH
     Route: 048
     Dates: start: 20140914, end: 20140925

REACTIONS (6)
  - Blood pressure increased [None]
  - Product taste abnormal [None]
  - Feeling abnormal [None]
  - Product quality issue [None]
  - Product substitution issue [None]
  - Product odour abnormal [None]

NARRATIVE: CASE EVENT DATE: 20140920
